FAERS Safety Report 12531286 (Version 2)
Quarter: 2016Q3

REPORT INFORMATION
  Report Type: Spontaneous
  Country: US (occurrence: US)
  Receive Date: 20160706
  Receipt Date: 20160907
  Transmission Date: 20161109
  Serious: No
  Sender: FDA-Public Use
  Company Number: US-PFIZER INC-2995771

PATIENT
  Age: 47 Year
  Sex: Male
  Weight: 76.82 kg

DRUGS (9)
  1. LIDOCAINE. [Concomitant]
     Active Substance: LIDOCAINE
     Indication: PAIN
     Dosage: 9 ML, SINGLE (INJECTION)
     Dates: start: 20150803, end: 20150803
  2. MIDAZOLAM [Suspect]
     Active Substance: MIDAZOLAM\MIDAZOLAM HYDROCHLORIDE
     Indication: ANXIETY
     Dosage: 2 MG, DOSE ALSO REPORTED AS 2 ML, FREQ: 1 MINUTE; INTERVAL: 2
     Route: 042
     Dates: start: 20150803, end: 20150803
  3. IOHEXOL [Concomitant]
     Active Substance: IOHEXOL
     Indication: IMAGING PROCEDURE
     Dosage: 2 ML, SINGLE (INJECTION)
     Dates: start: 20150803, end: 20150803
  4. FENTANYL CITRATE. [Suspect]
     Active Substance: FENTANYL CITRATE
     Dosage: 50 UG, UNK (Q 2 MINS)
     Route: 042
     Dates: start: 20150803, end: 20150803
  5. BUPIVACAINE. [Concomitant]
     Active Substance: BUPIVACAINE
     Indication: PAIN
     Dosage: 3 ML, SINGLE (INJECTION)
     Route: 050
     Dates: start: 20150803, end: 20150803
  6. NACL [Concomitant]
     Active Substance: SODIUM CHLORIDE
     Indication: MEDICATION DILUTION
     Dosage: 3 ML, SINGLE (INJECTION)
     Dates: start: 20150803, end: 20150803
  7. FENTANYL CITRATE. [Suspect]
     Active Substance: FENTANYL CITRATE
     Indication: PAIN
     Dosage: 100 UG, FREQ: 1 MINUTE; INTERVAL: 2
     Route: 042
     Dates: start: 20150803, end: 20150803
  8. IOHEXOL [Concomitant]
     Active Substance: IOHEXOL
     Indication: VISUAL IMPAIRMENT
  9. CELESTONE [Concomitant]
     Active Substance: BETAMETHASONE
     Indication: INFLAMMATION
     Dosage: 9 MG, SINGLE (INJECTION)
     Route: 050
     Dates: start: 20150803, end: 20150803

REACTIONS (4)
  - Blood pressure decreased [Recovered/Resolved]
  - Hypersensitivity [Recovered/Resolved]
  - Heart rate decreased [Recovered/Resolved]
  - Feeling hot [Recovered/Resolved]

NARRATIVE: CASE EVENT DATE: 20150803
